FAERS Safety Report 4333416-2 (Version None)
Quarter: 2004Q1

REPORT INFORMATION
  Report Type: 
  Country: None (occurrence: None)
  Receive Date: 20040329
  Receipt Date: 20031216
  Transmission Date: 20041129
  Serious: No
  Sender: FDA-Public Use
  Company Number: 03P-163-0244814-00

PATIENT
  Age: 61 Year
  Sex: Female
  Weight: 72.5755 kg

DRUGS (15)
  1. HUMIRA [Suspect]
     Indication: RHEUMATOID ARTHRITIS
     Dosage: 40 MG, 1 IN 2 WK, SUBCUTANEOUS
     Route: 058
     Dates: start: 20031017
  2. METHOTREXATE [Concomitant]
  3. FOLIC ACID [Concomitant]
  4. PANTOPRAZOLE [Concomitant]
  5. METFORMIN [Concomitant]
  6. LEVOTHYROXINE SODIUM [Concomitant]
  7. CELECOXIB [Concomitant]
  8. ALPRAZOLAM [Concomitant]
  9. ZOLPIDEM TARTRATE [Concomitant]
  10. AMITRIPTYLINE HCL [Concomitant]
  11. PROCHLORPERAZINE [Concomitant]
  12. OXYCOCET [Concomitant]
  13. FENTANYL [Concomitant]
  14. BUPROPION HYDROCHLORIDE [Concomitant]
  15. CITALOPRAM HYDROBROMIDE [Concomitant]

REACTIONS (2)
  - BRONCHITIS [None]
  - NAUSEA [None]
